FAERS Safety Report 23966285 (Version 1)
Quarter: 2024Q2

REPORT INFORMATION
  Report Type: Spontaneous
  Country: US (occurrence: US)
  Receive Date: 20240612
  Receipt Date: 20240612
  Transmission Date: 20240716
  Serious: Yes (Life-Threatening, Hospitalization)
  Sender: FDA-Public Use
  Company Number: US-MYLANLABS-2024M1052234

PATIENT
  Age: 20 Year
  Sex: Male

DRUGS (1)
  1. DIPHENHYDRAMINE [Suspect]
     Active Substance: DIPHENHYDRAMINE
     Indication: Product used for unknown indication
     Dosage: 300 DOSAGE FORM,25MG EACH PILLS
     Route: 048

REACTIONS (15)
  - Intentional overdose [Unknown]
  - Shock [Unknown]
  - Right ventricular failure [Recovering/Resolving]
  - Mental status changes [Unknown]
  - Seizure [Unknown]
  - Acute respiratory distress syndrome [Unknown]
  - Multiple organ dysfunction syndrome [Unknown]
  - Hepatic failure [Unknown]
  - Renal failure [Unknown]
  - Anaemia [Unknown]
  - Thrombocytopenia [Unknown]
  - Pulmonary haemorrhage [Unknown]
  - Cerebral haemorrhage [Unknown]
  - Hypoxia [Unknown]
  - Hypotension [Unknown]
